FAERS Safety Report 13034658 (Version 1)
Quarter: 2016Q4

REPORT INFORMATION
  Report Type: Spontaneous
  Country: US (occurrence: US)
  Receive Date: 20161216
  Receipt Date: 20161216
  Transmission Date: 20170207
  Serious: No
  Sender: FDA-Public Use
  Company Number: None

PATIENT
  Age: 68 Year
  Sex: Female

DRUGS (1)
  1. MELOXICAM 15 MG ZYDUS PHARMACEUTICALS [Suspect]
     Active Substance: MELOXICAM
     Indication: PAIN
     Route: 048
     Dates: start: 20161110, end: 20161110

REACTIONS (1)
  - Swelling face [None]

NARRATIVE: CASE EVENT DATE: 20161110
